FAERS Safety Report 6890292-1 (Version None)
Quarter: 2010Q3

REPORT INFORMATION
  Report Type: 
  Country: None (occurrence: None)
  Receive Date: 20100730
  Receipt Date: 20081010
  Transmission Date: 20110219
  Serious: No
  Sender: FDA-Public Use
  Company Number: US-PFIZER INC-2008080978

PATIENT
  Sex: Female
  Weight: 81.65 kg

DRUGS (8)
  1. LIPITOR [Suspect]
     Route: 048
     Dates: start: 20080601
  2. PLAVIX [Concomitant]
  3. ALTACE [Concomitant]
  4. ULTRAM [Concomitant]
  5. NEURONTIN [Concomitant]
  6. LYRICA [Concomitant]
  7. TOPROL-XL [Concomitant]
  8. SYNTHROID [Concomitant]
     Indication: HYPOTHYROIDISM

REACTIONS (1)
  - ARTHRALGIA [None]
